FAERS Safety Report 5813451-5 (Version None)
Quarter: 2008Q3

REPORT INFORMATION
  Report Type: 
  Country: None (occurrence: None)
  Receive Date: 20080717
  Receipt Date: 20080707
  Transmission Date: 20090109
  Serious: Yes (Other)
  Sender: FDA-Public Use
  Company Number: US-AMGEN-KDL283154

PATIENT
  Sex: Female
  Weight: 65.8 kg

DRUGS (3)
  1. PROCRIT [Suspect]
     Indication: RENAL FAILURE CHRONIC
     Route: 058
     Dates: start: 20070706
  2. MYCOPHENOLATE MOFETIL [Concomitant]
     Dates: start: 20031124
  3. TACROLIMUS [Concomitant]
     Dates: start: 20031124

REACTIONS (7)
  - DRUG INEFFECTIVE [None]
  - ERYTHEMA INFECTIOSUM [None]
  - HAEMATOCRIT DECREASED [None]
  - IRON BINDING CAPACITY TOTAL DECREASED [None]
  - PLATELET COUNT INCREASED [None]
  - SERUM FERRITIN INCREASED [None]
  - THERAPEUTIC RESPONSE DECREASED [None]
